FAERS Safety Report 4414634-1 (Version None)
Quarter: 2004Q3

REPORT INFORMATION
  Report Type: 
  Country: None (occurrence: None)
  Receive Date: 20040729
  Receipt Date: 20040716
  Transmission Date: 20050211
  Serious: Yes (Hospitalization)
  Sender: FDA-Public Use
  Company Number: 2004043561

PATIENT
  Age: 35 Year
  Sex: Male

DRUGS (6)
  1. ZITHROMAX [Suspect]
     Indication: TONGUE DISCOLOURATION
     Dosage: 250 MG, ORAL
     Route: 048
     Dates: start: 20040615, end: 20040616
  2. ACETAMINOPHEN [Concomitant]
  3. DICLOFENAC SODIUM [Concomitant]
  4. NORFLOXACIN [Concomitant]
  5. TIAPROFENIC ACID (TIAPROFENIC ACID) [Concomitant]
  6. MEQUITAZINE (MEQUITAZINE) [Concomitant]

REACTIONS (3)
  - ABDOMINAL PAIN [None]
  - DIARRHOEA [None]
  - PYREXIA [None]
